FAERS Safety Report 4701219-2 (Version None)
Quarter: 2005Q2

REPORT INFORMATION
  Report Type: 
  Country: None (occurrence: None)
  Receive Date: 20050627
  Receipt Date: 20050627
  Transmission Date: 20051028
  Serious: No
  Sender: FDA-Public Use
  Company Number: None

PATIENT
  Age: 78 Year
  Sex: Female

DRUGS (2)
  1. ZOCOR [Suspect]
     Indication: HYPERLIPIDAEMIA
     Dosage: ONE TAB PO QHS
     Route: 048
     Dates: start: 20050511, end: 20050607
  2. DILTIA XT 180 MG [Suspect]
     Indication: BLOOD PRESSURE INCREASED
     Dosage: ONE TAB PO Q PM
     Route: 048
     Dates: start: 20050511, end: 20050607

REACTIONS (3)
  - BLOOD CREATINE PHOSPHOKINASE INCREASED [None]
  - FATIGUE [None]
  - MYALGIA [None]
